FAERS Safety Report 20418977 (Version 1)
Quarter: 2022Q1

REPORT INFORMATION
  Report Type: Spontaneous
  Country: JP (occurrence: JP)
  Receive Date: 20220202
  Receipt Date: 20220202
  Transmission Date: 20220423
  Serious: Yes (Other)
  Sender: FDA-Public Use
  Company Number: JP-TAKEDA-2021TJP016320

PATIENT
  Age: 74 Year
  Sex: Female
  Weight: 51.8 kg

DRUGS (18)
  1. TRINTELLIX [Suspect]
     Active Substance: VORTIOXETINE HYDROBROMIDE
     Indication: Depression
     Dosage: 10 MILLIGRAM, QD
     Route: 048
     Dates: start: 20210326
  2. TRINTELLIX [Suspect]
     Active Substance: VORTIOXETINE HYDROBROMIDE
     Dosage: 5 MILLIGRAM, QD
     Route: 048
     Dates: start: 20210327, end: 20210331
  3. TRINTELLIX [Suspect]
     Active Substance: VORTIOXETINE HYDROBROMIDE
     Dosage: 5 MILLIGRAM, QD
     Route: 048
     Dates: start: 20210402
  4. TRINTELLIX [Suspect]
     Active Substance: VORTIOXETINE HYDROBROMIDE
     Dosage: 10 MILLIGRAM, QD
     Route: 048
     Dates: start: 20210405, end: 20210409
  5. DEPAKENE [Suspect]
     Active Substance: VALPROIC ACID
     Indication: Affect lability
     Dosage: 100 MILLIGRAM
     Route: 048
     Dates: start: 20190514
  6. DEPAKENE [Suspect]
     Active Substance: VALPROIC ACID
     Dosage: 200 MILLIGRAM
     Route: 048
  7. DEPAKENE [Suspect]
     Active Substance: VALPROIC ACID
     Dosage: 300 MILLIGRAM
     Route: 048
     Dates: start: 20210331, end: 20210404
  8. LORAZEPAM [Concomitant]
     Active Substance: LORAZEPAM
     Indication: Anxiety
     Dosage: 0.5 MILLIGRAM, TID
     Route: 048
     Dates: start: 20200514
  9. TANDOSPIRONE CITRATE [Concomitant]
     Active Substance: TANDOSPIRONE CITRATE
     Indication: Anxiety
     Dosage: 10 MILLIGRAM, BID
     Route: 048
     Dates: start: 20190301
  10. RIVOTRIL [Concomitant]
     Active Substance: CLONAZEPAM
     Indication: Affect lability
     Dosage: 0.5 MILLIGRAM, QD
     Route: 048
     Dates: start: 20190301
  11. BELSOMRA [Concomitant]
     Active Substance: SUVOREXANT
     Indication: Sleep disorder
     Dosage: 15 MILLIGRAM, QD
     Route: 048
     Dates: start: 20190404
  12. DORAL [Concomitant]
     Active Substance: QUAZEPAM
     Indication: Sleep disorder
     Dosage: 15 MILLIGRAM, QD
     Route: 048
     Dates: start: 20210218, end: 20210404
  13. AMLODIPINE [Concomitant]
     Active Substance: AMLODIPINE BESYLATE
     Indication: Hypertension
     Dosage: 5 MILLIGRAM, BID
     Route: 048
     Dates: start: 20190227
  14. CELECOXIB [Concomitant]
     Active Substance: CELECOXIB
     Indication: Osteoarthritis
     Dosage: 100 MILLIGRAM, BID
     Route: 048
     Dates: start: 20190228
  15. .ALPHA.-TOCOPHEROL ACETATE [Concomitant]
     Active Substance: .ALPHA.-TOCOPHEROL ACETATE
     Dosage: UNK
     Route: 065
  16. BIFIDOBACTERIUM SPP. [Concomitant]
     Active Substance: BIFIDOBACTERIUM SPP.
     Dosage: UNK
     Route: 065
  17. MAGNESIUM OXIDE [Concomitant]
     Active Substance: MAGNESIUM OXIDE
     Dosage: UNK
     Route: 065
  18. REBAMIPIDE [Concomitant]
     Active Substance: REBAMIPIDE
     Dosage: UNK
     Route: 065

REACTIONS (4)
  - Toxic skin eruption [Recovered/Resolved]
  - Delirium [Unknown]
  - Persecutory delusion [Unknown]
  - Underdose [Unknown]

NARRATIVE: CASE EVENT DATE: 20210326
